FAERS Safety Report 5078578-7 (Version None)
Quarter: 2006Q3

REPORT INFORMATION
  Report Type: 
  Country: None (occurrence: None)
  Receive Date: 20060810
  Receipt Date: 20060810
  Transmission Date: 20061208
  Serious: Yes (Other)
  Sender: FDA-Public Use
  Company Number: None

PATIENT
  Age: 51 Year
  Sex: Male
  Weight: 95.2554 kg

DRUGS (2)
  1. PAROXETINE [Suspect]
     Indication: OBSESSIVE-COMPULSIVE DISORDER
     Dosage: THREE  TABS PO QD
     Route: 048
     Dates: start: 20060612, end: 20060706
  2. PAROXETINE [Suspect]
     Indication: PANIC ATTACK
     Dosage: THREE  TABS PO QD
     Route: 048
     Dates: start: 20060612, end: 20060706

REACTIONS (3)
  - IMPAIRED WORK ABILITY [None]
  - PHARMACEUTICAL PRODUCT COMPLAINT [None]
  - SOMNOLENCE [None]
